FAERS Safety Report 7508309-X (Version None)
Quarter: 2011Q2

REPORT INFORMATION
  Report Type: 
  Country: None (occurrence: None)
  Receive Date: 20110527
  Receipt Date: 20110524
  Transmission Date: 20111010
  Serious: Yes (Hospitalization)
  Sender: FDA-Public Use
  Company Number: IT-TYCO HEALTHCARE/MALLINCKRODT-T201101108

PATIENT
  Sex: Female

DRUGS (1)
  1. OPTIRAY 300 [Suspect]
     Indication: COMPUTERISED TOMOGRAM
     Dosage: 120 ML, SINGLE
     Route: 042
     Dates: start: 20110504, end: 20110504

REACTIONS (3)
  - ORBITAL OEDEMA [None]
  - BRONCHOSPASM [None]
  - THROAT TIGHTNESS [None]
